FAERS Safety Report 7657259-7 (Version None)
Quarter: 2011Q3

REPORT INFORMATION
  Report Type: 
  Country: None (occurrence: None)
  Receive Date: 20110804
  Receipt Date: 20110721
  Transmission Date: 20111222
  Serious: Yes (Other)
  Sender: FDA-Public Use
  Company Number: PHHY2011US66051

PATIENT
  Sex: Female

DRUGS (6)
  1. PREMARIN [Concomitant]
     Dosage: 625 MG, UNK
  2. OMEPRAZOLE [Concomitant]
     Dosage: UNK UKN, UNK
  3. PAIN PILLS [Concomitant]
     Dosage: UNK UKN, UNK
  4. DIOVAN [Suspect]
     Indication: HYPERTENSION
     Dosage: 160 MG, QD
  5. HYDROCODONE [Suspect]
     Dosage: 500 MG, UNK, 1-2 TABLETS EVERY 4 HRS AS NEEDED
     Route: 048
  6. CEPHALEXIN [Concomitant]
     Dosage: 5 MG, BID

REACTIONS (4)
  - SPEECH DISORDER [None]
  - THYROID DISORDER [None]
  - DYSPHONIA [None]
  - OROPHARYNGEAL PAIN [None]
